FAERS Safety Report 13537420 (Version 1)
Quarter: 2017Q2

REPORT INFORMATION
  Report Type: Report from Study
  Country: JP (occurrence: JP)
  Receive Date: 20170511
  Receipt Date: 20170511
  Transmission Date: 20170830
  Serious: Yes (Other)
  Sender: FDA-Public Use
  Company Number: JP-MEDA-2017050022

PATIENT
  Age: 12 Year
  Sex: Male

DRUGS (2)
  1. 5-AMINOSALICYLATE [Suspect]
     Active Substance: MESALAMINE
     Indication: COLITIS ULCERATIVE
  2. 5-AMINOSALICYLATE [Suspect]
     Active Substance: MESALAMINE
     Indication: COLITIS ULCERATIVE

REACTIONS (2)
  - Kounis syndrome [Unknown]
  - Drug intolerance [Recovered/Resolved]
